FAERS Safety Report 22624408 (Version 1)
Quarter: 2023Q2

REPORT INFORMATION
  Report Type: Spontaneous
  Country: US (occurrence: None)
  Receive Date: 20230621
  Receipt Date: 20230621
  Transmission Date: 20230721
  Serious: Yes (Hospitalization)
  Sender: FDA-Public Use
  Company Number: 2023A137448

PATIENT
  Sex: Male

DRUGS (1)
  1. FARXIGA [Suspect]
     Active Substance: DAPAGLIFLOZIN PROPANEDIOL
     Route: 048
     Dates: start: 2023

REACTIONS (5)
  - Blood pressure decreased [Unknown]
  - Hypertension [Unknown]
  - Renal function test abnormal [Unknown]
  - Blood glucose decreased [Unknown]
  - Diabetes mellitus inadequate control [Unknown]
